FAERS Safety Report 9166773 (Version 1)
Quarter: 2012Q4

REPORT INFORMATION
  Report Type: 
  Country: US (occurrence: US)
  Receive Date: 20121126
  Receipt Date: 20121126
  Transmission Date: 20130627
  Serious: Yes (Other)
  Sender: FDA-Public Use
  Company Number: US-RB-046642-12

PATIENT
  Age: 23 Year
  Sex: Male

DRUGS (11)
  1. MUCINEX DM [Suspect]
     Indication: VASOMOTOR RHINITIS
     Route: 048
  2. MUCINEX DM [Suspect]
     Indication: PRODUCTIVE COUGH
     Route: 048
  3. MUCINEX DM [Suspect]
  4. MUCINEX FAST MAX ADULT COLD FLU THROAT (ACETAMINOPHEN) [Suspect]
     Indication: VASOMOTOR RHINITIS
     Route: 048
  5. MUCINEX FAST MAX ADULT COLD FLU THROAT (ACETAMINOPHEN) [Suspect]
     Indication: PRODUCTIVE COUGH
     Route: 048
  6. MUCINEX FAST-MAX COLD, FLU AND SORE THROAT [Suspect]
  7. MUCINEX FAST-MAX COLD, FLU AND SORE THROAT [Suspect]
  8. MUCINEX FAST-MAX COLD, FLU AND SORE THROAT [Suspect]
  9. NYQUIL [Concomitant]
     Indication: PRODUCT USED FOR UNKNOWN INDICATION
     Dates: start: 20121111
  10. FLONASE [Concomitant]
     Indication: PRODUCT USED FOR UNKNOWN INDICATION
  11. AZELASTINE HYDROCHLORIDE [Concomitant]
     Indication: PRODUCT USED FOR UNKNOWN INDICATION

REACTIONS (9)
  - Paranoia [Not Recovered/Not Resolved]
  - Diarrhoea [Unknown]
  - Abdominal discomfort [Unknown]
  - Thinking abnormal [Unknown]
  - Somnolence [Unknown]
  - Incorrect drug administration duration [Unknown]
  - Anxiety [Unknown]
  - Off label use [Unknown]
  - Drug ineffective [Not Recovered/Not Resolved]
